FAERS Safety Report 24223200 (Version 1)
Quarter: 2024Q3

REPORT INFORMATION
  Report Type: Spontaneous
  Country: CN (occurrence: CN)
  Receive Date: 20240819
  Receipt Date: 20240819
  Transmission Date: 20241017
  Serious: Yes (Hospitalization, Other)
  Sender: BAXTER
  Company Number: None

PATIENT
  Age: 70 Year
  Sex: Female
  Weight: 56 kg

DRUGS (3)
  1. CYCLOPHOSPHAMIDE [Suspect]
     Active Substance: CYCLOPHOSPHAMIDE
     Indication: Drug therapy
     Dosage: 900 MG, ONE TIME IN ONE DAY, FIRST CYCLE OF NEOADJUVANT CHEMOTHERAPY
     Route: 041
     Dates: start: 20240618, end: 20240618
  2. PIRARUBICIN [Suspect]
     Active Substance: PIRARUBICIN
     Indication: Drug therapy
     Dosage: 75 MG, ONE TIME IN ONE DAY, FIRST CYCLE OF NEOADJUVANT CHEMOTHERAPY
     Route: 041
     Dates: start: 20240618, end: 20240618
  3. DEXRAZOXANE [Suspect]
     Active Substance: DEXRAZOXANE
     Indication: Adjuvant therapy
     Dosage: 0.75 G, ONE TIME IN ONE DAY, FIRST CYCLE OF NEOADJUVANT CHEMOTHERAPY
     Route: 041
     Dates: start: 20240618, end: 20240618

REACTIONS (4)
  - Myelosuppression [Recovering/Resolving]
  - Breast cancer female [Unknown]
  - Breast cancer stage II [Unknown]
  - Condition aggravated [Unknown]

NARRATIVE: CASE EVENT DATE: 20240701
